FAERS Safety Report 25094907 (Version 3)
Quarter: 2025Q2

REPORT INFORMATION
  Report Type: Spontaneous
  Country: AU (occurrence: AU)
  Receive Date: 20250319
  Receipt Date: 20250415
  Transmission Date: 20250716
  Serious: Yes (Other)
  Sender: MERCK SHARP AND DOHME
  Company Number: AU-009507513-2264547

PATIENT
  Age: 76 Year
  Sex: Female

DRUGS (2)
  1. KEYTRUDA [Suspect]
     Active Substance: PEMBROLIZUMAB
     Indication: Transitional cell cancer of renal pelvis and ureter metastatic
     Route: 065
     Dates: start: 2019, end: 2020
  2. KEYTRUDA [Suspect]
     Active Substance: PEMBROLIZUMAB
     Indication: Transitional cell cancer of renal pelvis and ureter metastatic
     Route: 065

REACTIONS (4)
  - Transitional cell cancer of the renal pelvis and ureter recurrent [Unknown]
  - Economic problem [Unknown]
  - Acinar cell carcinoma of pancreas [Unknown]
  - Emotional distress [Unknown]

NARRATIVE: CASE EVENT DATE: 20241214
